FAERS Safety Report 5558386-0 (Version None)
Quarter: 2007Q4

REPORT INFORMATION
  Report Type: 
  Country: None (occurrence: None)
  Receive Date: 20071214
  Receipt Date: 20071203
  Transmission Date: 20080405
  Serious: Yes (Hospitalization)
  Sender: FDA-Public Use
  Company Number: FR-PFIZER INC-2007102393

PATIENT
  Sex: Female

DRUGS (3)
  1. NEURONTIN [Suspect]
  2. PAROXETINE HCL [Suspect]
  3. INEXIUM [Suspect]

REACTIONS (3)
  - BRAIN OEDEMA [None]
  - HEADACHE [None]
  - HYPONATRAEMIA [None]
